FAERS Safety Report 6005886-5 (Version None)
Quarter: 2008Q4

REPORT INFORMATION
  Report Type: 
  Country: None (occurrence: None)
  Receive Date: 20081216
  Receipt Date: 20081216
  Transmission Date: 20090506
  Serious: Yes (Other)
  Sender: FDA-Public Use
  Company Number: None

PATIENT
  Sex: Female
  Weight: 78.64 kg

DRUGS (12)
  1. ALENDRONATE SODIUM [Suspect]
     Dosage: 70MG TABLET 70 MG QWEEK ORAL
     Route: 048
     Dates: start: 20080911, end: 20081216
  2. ASPIRIN [Concomitant]
  3. ATENOLOL [Concomitant]
  4. AVAPRO [Concomitant]
  5. CALCIUM + D [Concomitant]
  6. IBUPROFEN TABLETS [Concomitant]
  7. IMDUR [Concomitant]
  8. LIPITOR [Concomitant]
  9. NITROGLYCERIN [Concomitant]
  10. PLAVIX [Concomitant]
  11. PRILOSEC OTC (OMEPRAZOLE OTC) [Concomitant]
  12. CALTRATE + D [Concomitant]

REACTIONS (1)
  - DIARRHOEA [None]
